FAERS Safety Report 9049373 (Version 1)
Quarter: 2013Q1

REPORT INFORMATION
  Report Type: Report from Study
  Country: US (occurrence: US)
  Receive Date: 20130205
  Receipt Date: 20130205
  Transmission Date: 20140127
  Serious: Yes (Other)
  Sender: FDA-Public Use
  Company Number: US-ABBOTT-13P-163-1042236-00

PATIENT
  Age: 44 Year
  Sex: Male

DRUGS (1)
  1. HUMIRA [Suspect]
     Indication: PSORIASIS
     Dates: start: 2010, end: 201211

REACTIONS (4)
  - Anal fistula [Recovered/Resolved]
  - Anal fistula [Recovered/Resolved]
  - Anal fistula [Recovered/Resolved]
  - Psoriasis [Unknown]
